FAERS Safety Report 4957772-7 (Version None)
Quarter: 2006Q1

REPORT INFORMATION
  Report Type: 
  Country: None (occurrence: None)
  Receive Date: 20060324
  Receipt Date: 20060314
  Transmission Date: 20060701
  Serious: Yes (Hospitalization)
  Sender: FDA-Public Use
  Company Number: BE200603004073

PATIENT
  Age: 77 Year
  Sex: Female

DRUGS (3)
  1. GEMCITABINE HYDROCHLORIDE (GEMCITABINE HYDROCHLORIDE) [Suspect]
     Indication: OVARIAN CANCER
     Dosage: 800 MG/M2, INTRAVENOUS
     Route: 042
  2. PACLITAXEL [Concomitant]
  3. CARBOPLATIN [Concomitant]

REACTIONS (2)
  - DRUG TOXICITY [None]
  - SEPTIC SHOCK [None]
